FAERS Safety Report 23995601 (Version 1)
Quarter: 2024Q2

REPORT INFORMATION
  Report Type: Spontaneous
  Country: US (occurrence: None)
  Receive Date: 20240612
  Receipt Date: 20240612
  Transmission Date: 20240716
  Serious: No
  Sender: FDA-Public Use
  Company Number: None

PATIENT
  Sex: Female

DRUGS (1)
  1. METHYLPREDNISOLONE [Suspect]
     Active Substance: METHYLPREDNISOLONE
     Dosage: OTHER QUANTITY : 21 TABLET(S)?

REACTIONS (1)
  - Product communication issue [None]
